FAERS Safety Report 13405033 (Version 1)
Quarter: 2017Q2

REPORT INFORMATION
  Report Type: Spontaneous
  Country: GB (occurrence: GB)
  Receive Date: 20170405
  Receipt Date: 20170405
  Transmission Date: 20170830
  Serious: Yes (Other)
  Sender: FDA-Public Use
  Company Number: GB-009507513-1704GBR001520

PATIENT
  Age: 24 Year
  Sex: Male
  Weight: 57 kg

DRUGS (1)
  1. MIRTAZAPINE. [Suspect]
     Active Substance: MIRTAZAPINE
     Indication: DEPRESSION
     Dosage: 15 MG, UNK
     Route: 048
     Dates: start: 20170310, end: 20170320

REACTIONS (2)
  - Stevens-Johnson syndrome [Recovering/Resolving]
  - Gingivitis [Unknown]

NARRATIVE: CASE EVENT DATE: 20170313
